FAERS Safety Report 9704776 (Version 1)
Quarter: 2013Q4

REPORT INFORMATION
  Report Type: Spontaneous
  Country: NL (occurrence: NL)
  Receive Date: 20131122
  Receipt Date: 20131122
  Transmission Date: 20140711
  Serious: Yes (Other)
  Sender: FDA-Public Use
  Company Number: PHHY2013NL132655

PATIENT
  Age: 71 Year
  Sex: Female

DRUGS (1)
  1. OMEPRAZOLE [Suspect]
     Indication: DYSPEPSIA
     Dosage: 20 MG, UNK

REACTIONS (4)
  - Subacute cutaneous lupus erythematosus [Recovering/Resolving]
  - Skin reaction [Recovering/Resolving]
  - Skin lesion [Recovering/Resolving]
  - Dermatitis [Recovering/Resolving]
